FAERS Safety Report 17253515 (Version 2)
Quarter: 2020Q1

REPORT INFORMATION
  Report Type: Spontaneous
  Country: CA (occurrence: CA)
  Receive Date: 20200109
  Receipt Date: 20200303
  Transmission Date: 20200409
  Serious: Yes (Hospitalization)
  Sender: FDA-Public Use
  Company Number: CA-TEVA-2020-CA-1166173

PATIENT
  Age: 70 Year
  Sex: Female

DRUGS (10)
  1. SPIRIVA [Concomitant]
     Active Substance: TIOTROPIUM BROMIDE MONOHYDRATE
  2. ANACIN NOS [Concomitant]
     Active Substance: ACETAMINOPHEN OR ACETAMINOPHEN\ASPIRIN\CAFFEINE OR ASPIRIN\CAFFEINE
  3. VENTOLIN [Concomitant]
     Active Substance: ALBUTEROL SULFATE
  4. BACLOFEN. [Concomitant]
     Active Substance: BACLOFEN
  5. ESCITALOPRAM [Concomitant]
     Active Substance: ESCITALOPRAM OXALATE
  6. TRIAZIDE [Concomitant]
  7. TEVA-QUETIAPINE XR [Suspect]
     Active Substance: QUETIAPINE
     Indication: SLEEP DISORDER
     Dosage: 300 MILLIGRAM DAILY;
     Route: 048
  8. TEVA-QUETIAPINE XR [Suspect]
     Active Substance: QUETIAPINE
     Indication: AFFECTIVE DISORDER
  9. LORAZEPAM. [Concomitant]
     Active Substance: LORAZEPAM
  10. TYLENOL #3(ACETAMINOPHEN/CODEINE) [Concomitant]

REACTIONS (7)
  - Neuroleptic malignant syndrome [Unknown]
  - Rhabdomyolysis [Unknown]
  - Diabetes mellitus [Unknown]
  - Myocardial infarction [Unknown]
  - Fall [Unknown]
  - Serotonin syndrome [Unknown]
  - Delirium [Unknown]
